FAERS Safety Report 11554735 (Version 1)
Quarter: 2015Q3

REPORT INFORMATION
  Report Type: Spontaneous
  Country: US (occurrence: US)
  Receive Date: 20150925
  Receipt Date: 20150925
  Transmission Date: 20151125
  Serious: Yes (Other)
  Sender: FDA-Public Use
  Company Number: US-ASTRAZENECA-2015SE91104

PATIENT
  Age: 50 Year
  Sex: Female
  Weight: 85.3 kg

DRUGS (6)
  1. TRAMADOL. [Concomitant]
     Active Substance: TRAMADOL
  2. BYDUREON [Suspect]
     Active Substance: EXENATIDE
     Indication: TYPE 2 DIABETES MELLITUS
     Route: 058
     Dates: start: 2015, end: 20150916
  3. KLONOPIN [Concomitant]
     Active Substance: CLONAZEPAM
  4. ABILIFY [Concomitant]
     Active Substance: ARIPIPRAZOLE
  5. LEVEMIR [Concomitant]
     Active Substance: INSULIN DETEMIR
     Dosage: 30
  6. MAGNESIUM [Concomitant]
     Active Substance: MAGNESIUM

REACTIONS (7)
  - Feeling abnormal [Unknown]
  - Weight decreased [Unknown]
  - Blood glucose increased [Unknown]
  - Stress [Unknown]
  - Loss of consciousness [Unknown]
  - Blood pressure decreased [Unknown]
  - Lethargy [Unknown]

NARRATIVE: CASE EVENT DATE: 2015
